FAERS Safety Report 8278267-1 (Version None)
Quarter: 2012Q2

REPORT INFORMATION
  Report Type: 
  Country: None (occurrence: None)
  Receive Date: 20120412
  Receipt Date: 20110715
  Transmission Date: 20120825
  Serious: No
  Sender: FDA-Public Use
  Company Number: US-ASTRAZENECA-2011SE42858

PATIENT
  Age: 47 Year
  Sex: Male

DRUGS (1)
  1. NEXIUM [Suspect]
     Route: 048

REACTIONS (6)
  - GASTROOESOPHAGEAL SPHINCTER INSUFFICIENCY [None]
  - SLEEP DISORDER DUE TO A GENERAL MEDICAL CONDITION [None]
  - OESOPHAGEAL PAIN [None]
  - DRUG DOSE OMISSION [None]
  - OROPHARYNGEAL PAIN [None]
  - GASTROOESOPHAGEAL REFLUX DISEASE [None]
